FAERS Safety Report 5844609-7 (Version None)
Quarter: 2008Q3

REPORT INFORMATION
  Report Type: 
  Country: None (occurrence: None)
  Receive Date: 20080812
  Receipt Date: 20071113
  Transmission Date: 20090109
  Serious: Yes (Disabling)
  Sender: FDA-Public Use
  Company Number: 2008S1011899

PATIENT
  Age: 78 Year
  Sex: Female

DRUGS (5)
  1. AMLODIPINE [Suspect]
     Indication: HYPERTENSION
     Dosage: 5 MG; DAILY; ORAL
     Route: 048
     Dates: start: 20070625, end: 20070719
  2. ADCAL-D3 [Concomitant]
  3. ALENDRONIC ACID [Concomitant]
  4. BENDROFLUAZIDE [Concomitant]
  5. ENALAPRIL MALEATE [Concomitant]

REACTIONS (5)
  - ASTHENIA [None]
  - EMOTIONAL DISORDER [None]
  - JOINT SWELLING [None]
  - PARAESTHESIA [None]
  - RASH [None]
